FAERS Safety Report 9576427 (Version 1)
Quarter: 2013Q4

REPORT INFORMATION
  Report Type: Spontaneous
  Country: US (occurrence: US)
  Receive Date: 20131001
  Receipt Date: 20131001
  Transmission Date: 20140711
  Serious: No
  Sender: FDA-Public Use
  Company Number: US-AMGEN-USASP2013003284

PATIENT
  Sex: Female
  Weight: 68.93 kg

DRUGS (17)
  1. ENBREL [Suspect]
     Indication: RHEUMATOID ARTHRITIS
     Dosage: 50 MG, QWK
     Route: 058
  2. CELEBREX [Concomitant]
     Dosage: 50 MG, UNK
  3. METHOTREXATE [Concomitant]
     Dosage: 2.5 MG, UNK
  4. PREDNISONE [Concomitant]
     Dosage: 1 MG, UNK
  5. SIMVASTATIN [Concomitant]
     Dosage: 10 MG, UNK
  6. FOLIC ACID [Concomitant]
     Dosage: 1 MG, UNK
  7. SULFASALAZIN [Concomitant]
     Dosage: 500 MG, UNK
  8. LIVER [Concomitant]
     Dosage: 500 MG, UNK
  9. FISH OIL [Concomitant]
     Dosage: UNK
  10. VITAMIN D                          /00107901/ [Concomitant]
     Dosage: 1000 UNIT, UNK
  11. CALCIUM [Concomitant]
     Dosage: 500 UNK, UNK
  12. VITAMIN B12                        /00056201/ [Concomitant]
     Dosage: 1000 UNK, UNK
  13. MULTIVITAMINS, PLAIN [Concomitant]
     Dosage: UNK
  14. COQ-10 [Concomitant]
     Dosage: 100 MG, UNK
  15. B COMPLETE                         /06817001/ [Concomitant]
     Dosage: UNK
  16. RISPERDAL [Concomitant]
     Dosage: 0.25 MG, UNK
  17. EVOXAC [Concomitant]
     Dosage: 30 MG, UNK

REACTIONS (1)
  - Therapeutic response decreased [Unknown]
